FAERS Safety Report 15241844 (Version 1)
Quarter: 2018Q4

REPORT INFORMATION
  Report Type: Other
  Country: IT (occurrence: IT)
  Receive Date: 20180805
  Receipt Date: 20180805
  Transmission Date: 20190204
  Serious: Yes (Hospitalization)
  Sender: FDA-Public Use
  Company Number: IT-B. BRAUN MEDICAL INC.-2053256

PATIENT
  Age: 48 Year
  Sex: Male

DRUGS (1)
  1. POTASSIUM CHLORIDE FOR INJECTIO1 N CONCENTRATE USP 0264-1940-20 (ANDA 08 [Suspect]
     Active Substance: POTASSIUM CHLORIDE

REACTIONS (3)
  - Muscle contractions involuntary [None]
  - Pain in extremity [None]
  - Myotonia [None]
